FAERS Safety Report 7768759-3 (Version None)
Quarter: 2011Q3

REPORT INFORMATION
  Report Type: 
  Country: None (occurrence: None)
  Receive Date: 20110922
  Receipt Date: 20110414
  Transmission Date: 20111222
  Serious: No
  Sender: FDA-Public Use
  Company Number: US-ASTRAZENECA-2011SE21544

PATIENT
  Age: 54 Year
  Sex: Male
  Weight: 134.3 kg

DRUGS (3)
  1. SEROQUEL XR [Suspect]
     Indication: DEPRESSION
     Route: 048
  2. LORAZEPAM [Concomitant]
  3. FISH OIL [Concomitant]

REACTIONS (6)
  - TACHYPHRENIA [None]
  - THERAPEUTIC RESPONSE UNEXPECTED [None]
  - ANXIETY [None]
  - DRUG DOSE OMISSION [None]
  - INSOMNIA [None]
  - FATIGUE [None]
